FAERS Safety Report 4487209-6 (Version None)
Quarter: 2004Q4

REPORT INFORMATION
  Report Type: 
  Country: None (occurrence: None)
  Receive Date: 20041022
  Receipt Date: 20041014
  Transmission Date: 20050328
  Serious: Yes (Hospitalization)
  Sender: FDA-Public Use
  Company Number: 2004AP05329

PATIENT
  Age: 76 Year
  Sex: Female

DRUGS (7)
  1. ANAPEINE [Suspect]
     Indication: EPIDURAL ANAESTHESIA
     Dosage: SEE IMAGE
     Route: 008
  2. XYLOCAINE [Concomitant]
  3. THAMYLAL [Concomitant]
  4. VECURONIUM BROMIDE [Concomitant]
  5. SEVOFLURANE [Concomitant]
  6. MORPHINE HYDROCHLORIDE [Concomitant]
  7. DROPERIDOL [Concomitant]

REACTIONS (5)
  - ANAESTHETIC COMPLICATION [None]
  - MEDICATION ERROR [None]
  - MYASTHENIA GRAVIS CRISIS [None]
  - PO2 DECREASED [None]
  - POST PROCEDURAL COMPLICATION [None]
